FAERS Safety Report 5498987-1 (Version None)
Quarter: 2007Q4

REPORT INFORMATION
  Report Type: 
  Country: None (occurrence: None)
  Receive Date: 20071026
  Receipt Date: 20070511
  Transmission Date: 20080405
  Serious: No
  Sender: FDA-Public Use
  Company Number: A0651045A

PATIENT
  Age: 70 Year
  Sex: Female

DRUGS (4)
  1. ADVAIR DISKUS 100/50 [Suspect]
     Indication: ASTHMA
     Dosage: 1PUFF TWICE PER DAY
     Route: 055
     Dates: start: 20061201
  2. HYDROCHLOROTHIAZIDE [Concomitant]
  3. ALEVE [Concomitant]
  4. PROAIR HFA [Concomitant]

REACTIONS (3)
  - DIZZINESS [None]
  - JOINT SWELLING [None]
  - MUSCULOSKELETAL DISCOMFORT [None]
